FAERS Safety Report 6294406-6 (Version None)
Quarter: 2009Q3

REPORT INFORMATION
  Report Type: 
  Country: None (occurrence: None)
  Receive Date: 20090730
  Receipt Date: 20090723
  Transmission Date: 20100115
  Serious: Yes (Hospitalization)
  Sender: FDA-Public Use
  Company Number: 1000007695

PATIENT
  Age: 70 Year
  Sex: Female

DRUGS (2)
  1. LEXAPRO [Suspect]
     Indication: DEPRESSION
     Dates: start: 20040101, end: 20040101
  2. BLOOD PRESSURE MEDICATION (NOS) [Concomitant]

REACTIONS (1)
  - CONVULSION [None]
